FAERS Safety Report 9281287 (Version 2)
Quarter: 2013Q2

REPORT INFORMATION
  Report Type: Spontaneous
  Country: US (occurrence: US)
  Receive Date: 20130509
  Receipt Date: 20130611
  Transmission Date: 20140414
  Serious: Yes (Other)
  Sender: FDA-Public Use
  Company Number: US-PFIZER INC-2013140096

PATIENT
  Sex: Female

DRUGS (1)
  1. GLIPIZIDE [Suspect]
     Indication: DIABETES MELLITUS
     Dosage: UNK

REACTIONS (4)
  - Cerebrovascular accident [Unknown]
  - Hypertension [Unknown]
  - Blood cholesterol increased [Unknown]
  - Blood glucose increased [Unknown]
